FAERS Safety Report 9779545 (Version 2)
Quarter: 2014Q2

REPORT INFORMATION
  Report Type: Spontaneous
  Country: FR (occurrence: FR)
  Receive Date: 20131223
  Receipt Date: 20140418
  Transmission Date: 20141212
  Serious: Yes (Other)
  Sender: FDA-Public Use
  Company Number: FR-ELI_LILLY_AND_COMPANY-FR201312006580

PATIENT
  Age: 44 Year
  Sex: Male
  Weight: 59 kg

DRUGS (19)
  1. ALIMTA [Suspect]
     Indication: NON-SMALL CELL LUNG CANCER
     Dosage: 500 MG/M2, UNKNOWN
     Route: 042
     Dates: start: 20131021
  2. ALIMTA [Suspect]
     Dosage: 500 MG/M2, UNKNOWN
     Route: 065
     Dates: start: 20131115
  3. ALIMTA [Suspect]
     Dosage: 500 MG/M2, UNKNOWN
     Route: 065
     Dates: start: 20131209
  4. ALIMTA [Suspect]
     Dosage: 500 MG/M2, UNKNOWN
     Route: 065
     Dates: start: 20140102
  5. ALIMTA [Suspect]
     Dosage: 500 MG/M2, UNKNOWN
     Dates: start: 20140124
  6. ALIMTA [Suspect]
     Dosage: 500 MG/M2, UNKNOWN
     Route: 065
     Dates: start: 20140214
  7. ALIMTA [Suspect]
     Dosage: 500 MG/M2, UNKNOWN
     Route: 065
     Dates: start: 201403
  8. CARBOPLATIN [Suspect]
     Indication: NON-SMALL CELL LUNG CANCER
     Dosage: UNK
     Route: 042
     Dates: start: 20131021
  9. CARBOPLATIN [Suspect]
     Dosage: UNK
     Route: 042
     Dates: start: 20131115
  10. CARBOPLATIN [Suspect]
     Dosage: UNK
     Route: 042
     Dates: start: 20131209
  11. CARBOPLATIN [Suspect]
     Dosage: UNK
     Route: 042
     Dates: start: 20140102
  12. DEXAMETHASONE [Concomitant]
     Indication: PREMEDICATION
     Dosage: 4 MG, BID
  13. FOLIC ACID [Concomitant]
     Indication: PREMEDICATION
  14. VITAMIN B12                        /00056201/ [Concomitant]
     Dosage: 1 DF, EVERY 9 WEEKS
     Route: 030
  15. INEXIUM                            /01479302/ [Concomitant]
     Dosage: 20 DF, QD
  16. ATARAX                             /00595201/ [Concomitant]
     Dosage: 25 DF, EACH EVENING
  17. IMOVANE [Concomitant]
     Dosage: 1 DF, EACH EVENING
  18. SEROPLEX [Concomitant]
     Dosage: 10 DF, UNKNOWN
  19. INNOHEP [Concomitant]
     Dosage: 12000 U, QD

REACTIONS (2)
  - Mixed liver injury [Unknown]
  - Off label use [Unknown]
